FAERS Safety Report 13718137 (Version 1)
Quarter: 2017Q3

REPORT INFORMATION
  Report Type: Report from Study
  Country: DK (occurrence: DK)
  Receive Date: 20170705
  Receipt Date: 20170705
  Transmission Date: 20171127
  Serious: Yes (Hospitalization)
  Sender: FDA-Public Use
  Company Number: DK-TEVA-764291ACC

PATIENT
  Age: 68 Year
  Sex: Male
  Weight: 54.97 kg

DRUGS (6)
  1. MABLET [Concomitant]
     Dosage: 360 MG, UNK
     Dates: start: 20161219
  2. NITROFURANTOIN. [Concomitant]
     Active Substance: NITROFURANTOIN
     Dosage: 50 MG, UNK
     Dates: start: 20170224
  3. LOSARTAN. [Suspect]
     Active Substance: LOSARTAN
     Dosage: 50 MG, UNK
     Dates: start: 20160622
  4. XARELTO [Suspect]
     Active Substance: RIVAROXABAN
     Indication: THROMBOSIS PROPHYLAXIS
     Dosage: 20 MG, ONCE,6 MONTHS
     Dates: start: 20170408
  5. PANTOPRAZOLE [Concomitant]
     Active Substance: PANTOPRAZOLE
     Dosage: 40 MG, UNK
     Dates: start: 20161214
  6. VITAMIN D3 [Concomitant]
     Active Substance: CHOLECALCIFEROL
     Dosage: 50 ?G, UNK
     Dates: start: 20161219

REACTIONS (4)
  - Epistaxis [Recovered/Resolved]
  - Stoma site haemorrhage [Recovered/Resolved]
  - Anaemia [Recovered/Resolved]
  - Haemoglobin decreased [Recovered/Resolved]

NARRATIVE: CASE EVENT DATE: 20170410
